APPROVED DRUG PRODUCT: RILUZOLE
Active Ingredient: RILUZOLE
Strength: 50MG/10ML
Dosage Form/Route: SUSPENSION;ORAL
Application: A216035 | Product #001 | TE Code: AB
Applicant: ALKEM LABORATORIES LTD
Approved: Aug 22, 2024 | RLD: No | RS: No | Type: RX